FAERS Safety Report 7053325-8 (Version None)
Quarter: 2010Q4

REPORT INFORMATION
  Report Type: 
  Country: None (occurrence: None)
  Receive Date: 20101020
  Receipt Date: 20101006
  Transmission Date: 20110411
  Serious: Yes (Hospitalization)
  Sender: FDA-Public Use
  Company Number: US-RANBAXY-2010RR-38852

PATIENT
  Age: 43 Year
  Sex: Female

DRUGS (23)
  1. DOXYCYCLINE HYDROCHLORIDE [Suspect]
     Indication: PRODUCT USED FOR UNKNOWN INDICATION
     Route: 065
  2. LEVAQUIN [Suspect]
     Indication: PRODUCT USED FOR UNKNOWN INDICATION
     Route: 048
  3. CICLETANINE HYDROCHLORIDE [Suspect]
     Indication: PULMONARY ARTERIAL HYPERTENSION
     Dosage: UNK
     Route: 048
     Dates: start: 20100713
  4. FLOLAN [Suspect]
     Indication: PRODUCT USED FOR UNKNOWN INDICATION
     Route: 065
  5. DIGOXIN [Concomitant]
     Route: 065
  6. DOCUSATE SODIUM [Concomitant]
     Route: 065
  7. CYMBALTA [Concomitant]
     Route: 065
  8. LUNESTA [Concomitant]
     Route: 065
  9. ALLEGRA [Concomitant]
     Route: 065
  10. HYDROXYZINE [Concomitant]
     Route: 065
  11. LACTOBACILLUS ACIDOPHILUS [Concomitant]
     Route: 065
  12. LANSOPRAZOLE [Concomitant]
     Route: 065
  13. SINGULAIR [Concomitant]
     Route: 065
  14. DEMADEX [Concomitant]
     Route: 065
  15. TRAMADOL HCL [Concomitant]
     Route: 065
  16. COUMADIN [Concomitant]
     Route: 065
  17. CARAFATE [Concomitant]
     Route: 065
  18. SPIRONOLACTONE [Concomitant]
     Route: 065
  19. MIRAPEX [Concomitant]
     Route: 065
  20. POTASSIUM CHLORIDE [Concomitant]
     Route: 065
  21. LEKOVIT CA [Concomitant]
     Route: 065
  22. AMILORIDE HYDROCHLORIDE [Concomitant]
     Route: 065
  23. RHINOCORT [Concomitant]
     Route: 065

REACTIONS (2)
  - CANDIDIASIS [None]
  - PYREXIA [None]
